FAERS Safety Report 10674466 (Version 3)
Quarter: 2015Q2

REPORT INFORMATION
  Report Type: Spontaneous
  Country: US (occurrence: US)
  Receive Date: 20141224
  Receipt Date: 20150407
  Transmission Date: 20150821
  Serious: No
  Sender: FDA-Public Use
  Company Number: US-PFIZER INC-2014352822

PATIENT
  Age: 54 Year
  Sex: Female

DRUGS (33)
  1. INSULIN [Concomitant]
     Active Substance: INSULIN NOS
     Dosage: UNK
     Dates: start: 1964
  2. FORTEO [Concomitant]
     Active Substance: TERIPARATIDE
     Indication: BONE DENSITY DECREASED
     Dosage: 1 DF, DAILY
     Dates: start: 201410, end: 201412
  3. OXYCODONE [Concomitant]
     Active Substance: OXYCODONE
     Indication: PAIN
     Dosage: 5 MG, AS NEEDED (5MG. 1-2Q 6HRS)
     Dates: start: 2014
  4. CHROMIUM PICOLINATE [Concomitant]
     Active Substance: CHROMIUM PICOLINATE
     Dosage: 1000 ?G, DAILY
     Dates: start: 1995
  5. NEXIUM [Concomitant]
     Active Substance: ESOMEPRAZOLE MAGNESIUM
     Indication: GASTROOESOPHAGEAL REFLUX DISEASE
     Dosage: 40 MG, 1X/DAY (1 AM)
     Dates: start: 2013
  6. SIMVASTATIN. [Concomitant]
     Active Substance: SIMVASTATIN
     Indication: BLOOD CHOLESTEROL
     Dosage: 20 MG, DAILY
     Dates: start: 2005
  7. XALATAN [Suspect]
     Active Substance: LATANOPROST
     Indication: OCULAR HYPERTENSION
     Dosage: ONE DROP IN BOTH EYES DAILY
     Route: 047
     Dates: start: 20110222
  8. CLEOCIN [Suspect]
     Active Substance: CLINDAMYCIN PHOSPHATE
     Indication: ACNE
     Dosage: 1DF, 2XDAY
     Route: 061
  9. ATENOLOL. [Concomitant]
     Active Substance: ATENOLOL
     Dosage: 50 MG, DAILY
     Dates: start: 2006
  10. CITALOPRAM [Concomitant]
     Active Substance: CITALOPRAM HYDROBROMIDE
     Indication: DEPRESSION
     Dosage: 40 MG, DAILY
     Dates: start: 2012
  11. FLEXERIL [Concomitant]
     Active Substance: CYCLOBENZAPRINE HYDROCHLORIDE
     Indication: MUSCLE RELAXANT THERAPY
     Dosage: 10 MG, DAILY
  12. ESTRADIOL. [Concomitant]
     Active Substance: ESTRADIOL
     Dosage: ONE TABLET, 1XDAY
     Dates: start: 2012
  13. XALATAN [Suspect]
     Active Substance: LATANOPROST
     Dosage: 0.005 UNK, (005 % BOTH EYES ONCE DAILY)
  14. QUINAPRIL [Concomitant]
     Active Substance: QUINAPRIL\QUINAPRIL HYDROCHLORIDE
     Indication: HYPERTENSION
     Dosage: 60 MG, DAILY
  15. BUPROPION HCL [Concomitant]
     Active Substance: BUPROPION HYDROCHLORIDE
     Indication: DEPRESSION
     Dosage: 150 MG, UNK
     Dates: start: 2005
  16. CLOBETASOL [Concomitant]
     Active Substance: CLOBETASOL
     Dosage: UNK, 1XDAY
     Route: 067
     Dates: start: 2008, end: 2012
  17. FLAX OIL [Concomitant]
     Dosage: 1200 MG, 2X/DAY
     Dates: start: 2005
  18. XALATAN [Suspect]
     Active Substance: LATANOPROST
     Indication: GLAUCOMA
     Dosage: 0.005 UNK, UNK, (0.005 % BOTH EYES ONCE DAILY
  19. FORTEO [Concomitant]
     Active Substance: TERIPARATIDE
     Indication: BONE DISORDER
  20. TIMOLOL [Concomitant]
     Active Substance: TIMOLOL
     Indication: OCULAR HYPERTENSION
     Dosage: 1 GTT, 2XDAY
     Route: 047
     Dates: start: 2013
  21. TIMOLOL [Concomitant]
     Active Substance: TIMOLOL
     Dosage: 0.5% TIMOLOL, 1 DROP LEFT EYE 2X/DAY
     Dates: start: 20130402
  22. ESTRACE [Concomitant]
     Active Substance: ESTRADIOL
     Dosage: 1 GRAM 2X WKLY
     Route: 067
     Dates: start: 2008
  23. CALCIUM WITH VITAMIN D [Concomitant]
     Active Substance: CALCIUM\VITAMIN D
     Dosage: 1 DF, DAILY AT BEDTIME
     Dates: start: 2005, end: 201408
  24. XALATAN [Suspect]
     Active Substance: LATANOPROST
     Indication: EXFOLIATION GLAUCOMA
     Dosage: 2 DROPS IN EACH EYE AT BEDTIME
  25. ASPIRIN. [Concomitant]
     Active Substance: ASPIRIN
     Dosage: 81 MG, DAILY
     Dates: start: 2010
  26. DOCUSATE SODIUM W/STIMULANT LAXATIVE [Concomitant]
     Dosage: 50 MG, 1XDAY (HS)
     Dates: start: 1990
  27. SUPER COLLAGEN +C [Concomitant]
     Dosage: 1 DF, ALTERNATE DAY
  28. BUPROPION HCL [Concomitant]
     Active Substance: BUPROPION HYDROCHLORIDE
     Indication: SEASONAL AFFECTIVE DISORDER
  29. CLONAZEPAM. [Concomitant]
     Active Substance: CLONAZEPAM
     Indication: ANXIETY
     Dosage: 0.5MG, (1 1/2 AM, 1 AFTERNOON + 2 HS)
     Dates: start: 2005
  30. LYRICA [Suspect]
     Active Substance: PREGABALIN
     Indication: FIBROMYALGIA
     Dosage: 300 MG, (1 AM; 2 HS)
     Dates: start: 2010
  31. VOLTAREN [Concomitant]
     Active Substance: DICLOFENAC SODIUM
     Indication: INFLAMMATION
     Dosage: 100 MG, 2X/DAY (50MG-2A.M + 2HS)
  32. VICODIN [Concomitant]
     Active Substance: ACETAMINOPHEN\HYDROCODONE BITARTRATE
     Indication: PAIN
     Dosage: UNK, AS NEEDED (2Q 4-6HRS)
     Dates: start: 1998
  33. MAGNESIUM/ZINC [Concomitant]
     Indication: BONE DISORDER
     Dosage: 1 DF, DAILY
     Dates: start: 1995

REACTIONS (1)
  - Rotator cuff syndrome [Not Recovered/Not Resolved]

NARRATIVE: CASE EVENT DATE: 201408
